FAERS Safety Report 7898047-6 (Version None)
Quarter: 2011Q4

REPORT INFORMATION
  Report Type: 
  Country: None (occurrence: None)
  Receive Date: 20111107
  Receipt Date: 20111107
  Transmission Date: 20120403
  Serious: Yes (Other)
  Sender: FDA-Public Use
  Company Number: None

PATIENT
  Age: 26 Year
  Sex: Female
  Weight: 61.234 kg

DRUGS (1)
  1. IMPLANON [Suspect]
     Indication: CONTRACEPTION
     Dosage: 1
     Route: 059
     Dates: start: 20090914, end: 20111107

REACTIONS (4)
  - PANIC ATTACK [None]
  - ANXIETY [None]
  - DEPRESSION [None]
  - HEADACHE [None]
